FAERS Safety Report 4505089-7 (Version None)
Quarter: 2004Q4

REPORT INFORMATION
  Report Type: 
  Country: None (occurrence: None)
  Receive Date: 20041117
  Receipt Date: 20041117
  Transmission Date: 20050328
  Serious: Yes (Hospitalization)
  Sender: FDA-Public Use
  Company Number: None

PATIENT
  Age: 77 Year
  Sex: Male

DRUGS (13)
  1. FUROSEMIDE [Suspect]
     Indication: OEDEMA
     Dosage: 40 MG QD
     Dates: start: 20000417
  2. CITALOPRAM [Concomitant]
  3. LORAZEPAM [Concomitant]
  4. METOPROLOL [Concomitant]
  5. SIMVASTATIN [Concomitant]
  6. NITROGLYCERIN [Concomitant]
  7. ISOSORBIDE [Concomitant]
  8. HYCOSCYAMINE [Concomitant]
  9. MECLIZINE [Concomitant]
  10. TAMSULOSIN [Concomitant]
  11. CALEMONIN [Concomitant]
  12. ASPIRIN [Concomitant]
  13. REGROTON [Concomitant]

REACTIONS (1)
  - HYPOTENSION [None]
